FAERS Safety Report 6220438-X (Version None)
Quarter: 2009Q2

REPORT INFORMATION
  Report Type: 
  Country: None (occurrence: None)
  Receive Date: 20090605
  Receipt Date: 20090527
  Transmission Date: 20091009
  Serious: Yes (Other)
  Sender: FDA-Public Use
  Company Number: US-WYE-H09511909

PATIENT

DRUGS (2)
  1. TEMSIROLIMUS (TEMSIROLIMUS, CONCENTRATE FOR SOLUTION FOR INFUSION) [Suspect]
     Indication: GLIOBLASTOMA
     Dosage: 25 MG 1X PER 4 WK, INTRAVENOUS
     Route: 042
  2. NEXAVAR [Suspect]
     Indication: GLIOBLASTOMA
     Dosage: 200 MG 2X PER 1 DAY, ORAL
     Route: 048

REACTIONS (1)
  - FATIGUE [None]
